FAERS Safety Report 12833285 (Version 2)
Quarter: 2016Q4

REPORT INFORMATION
  Report Type: Report from Study
  Country: US (occurrence: US)
  Receive Date: 20161010
  Receipt Date: 20161110
  Transmission Date: 20170207
  Serious: Yes (Death)
  Sender: FDA-Public Use
  Company Number: US-TAIHO ONCOLOGY INC-EU-2016-02594

PATIENT
  Age: 68 Year
  Sex: Male

DRUGS (6)
  1. FENTANYL. [Concomitant]
     Active Substance: FENTANYL
     Dosage: 50 MCG 72 HOUR PATCH
  2. VACCINIUM MACROCARPON [Concomitant]
     Active Substance: CRANBERRY
  3. IRON [Concomitant]
     Active Substance: IRON
  4. BAYER LOW DOSE [Concomitant]
     Active Substance: ASPIRIN
  5. DILAUDID [Concomitant]
     Active Substance: HYDROMORPHONE HYDROCHLORIDE
  6. LONSURF [Suspect]
     Active Substance: TIPIRACIL HYDROCHLORIDE\TRIFLURIDINE
     Dosage: THE PATIENT NEVER STARTED LONSURF THERAPY.
     Route: 048

REACTIONS (1)
  - Disease progression [Fatal]

NARRATIVE: CASE EVENT DATE: 201608
